FAERS Safety Report 5691092-0 (Version None)
Quarter: 2008Q2

REPORT INFORMATION
  Report Type: 
  Country: None (occurrence: None)
  Receive Date: 20080401
  Receipt Date: 20080328
  Transmission Date: 20081010
  Serious: Yes (Hospitalization)
  Sender: FDA-Public Use
  Company Number: UA-BOEHRINGER INGELHEIM GMBH, GERMANY-2008-AP-00084AP

PATIENT
  Age: 76 Year
  Sex: Female

DRUGS (2)
  1. AGGRENOX [Suspect]
     Indication: TRANSIENT ISCHAEMIC ATTACK
     Route: 048
     Dates: start: 20080324, end: 20080325
  2. ANTIDEPRESSANTS [Concomitant]

REACTIONS (3)
  - ARRHYTHMIA [None]
  - ATRIAL FIBRILLATION [None]
  - HEADACHE [None]
